FAERS Safety Report 24351645 (Version 2)
Quarter: 2024Q4

REPORT INFORMATION
  Report Type: Spontaneous
  Country: US (occurrence: US)
  Receive Date: 20240923
  Receipt Date: 20241007
  Transmission Date: 20250115
  Serious: No
  Sender: Harrow Health
  Company Number: US-IMP-2024000751

PATIENT
  Age: 66 Year
  Sex: Male

DRUGS (2)
  1. VEVYE [Suspect]
     Active Substance: CYCLOSPORINE
     Indication: Product used for unknown indication
     Dosage: 2/DAY
     Route: 047
     Dates: start: 20240701, end: 202409
  2. TYRVAYA [Concomitant]
     Active Substance: VARENICLINE TARTRATE
     Indication: Product used for unknown indication
     Dosage: TWICE A DAY
     Route: 045
     Dates: start: 202306

REACTIONS (5)
  - Drug hypersensitivity [Recovered/Resolved]
  - Eye inflammation [Recovered/Resolved]
  - Swelling of eyelid [Recovered/Resolved]
  - Eye irritation [Recovered/Resolved]
  - Eyelid irritation [Recovered/Resolved]

NARRATIVE: CASE EVENT DATE: 20240701
